FAERS Safety Report 25684326 (Version 2)
Quarter: 2025Q3

REPORT INFORMATION
  Report Type: Spontaneous
  Country: US (occurrence: US)
  Receive Date: 20250815
  Receipt Date: 20250926
  Transmission Date: 20251021
  Serious: No
  Sender: RECKITT BENCKISER
  Company Number: US-PROD-AS2-212756134-20-24-USA-RB-0005401

PATIENT
  Age: 30 Year
  Sex: Male
  Weight: 77.111 kg

DRUGS (1)
  1. KY DURATION FOR MEN (LIDOCAINE) [Suspect]
     Active Substance: LIDOCAINE
     Indication: Product used for unknown indication
     Route: 065
     Dates: start: 20240607, end: 20240607

REACTIONS (1)
  - Male sexual dysfunction [Not Recovered/Not Resolved]

NARRATIVE: CASE EVENT DATE: 20240607
